FAERS Safety Report 8896283 (Version 1)
Quarter: 2012Q4

REPORT INFORMATION
  Report Type: Spontaneous
  Country: CH (occurrence: None)
  Receive Date: 20121031
  Receipt Date: 20121031
  Transmission Date: 20130627
  Serious: No
  Sender: FDA-Public Use
  Company Number: SIM_00414_2012

PATIENT
  Age: 7 Year
  Sex: Male

DRUGS (1)
  1. SIMILASAN FOR INFLAMMATION OF THE MOUTH AND THROAT [Suspect]
     Indication: PRODUCT USED FOR UNKNOWN INDICATION

REACTIONS (2)
  - Device breakage [None]
  - Foreign body [None]
